FAERS Safety Report 6767451-1 (Version None)
Quarter: 2010Q2

REPORT INFORMATION
  Report Type: 
  Country: None (occurrence: None)
  Receive Date: 20100614
  Receipt Date: 20100601
  Transmission Date: 20101027
  Serious: Yes (Other)
  Sender: FDA-Public Use
  Company Number: PHHY2009NL29546

PATIENT
  Sex: Female
  Weight: 100 kg

DRUGS (6)
  1. LEPONEX [Suspect]
     Indication: PSYCHOTIC DISORDER
     Dosage: 100 MG, 1DD2
     Dates: start: 20090628
  2. LEPONEX [Suspect]
     Dosage: 150 MG/DAY
  3. LEPONEX [Suspect]
     Dosage: 200 MG/DAY
  4. LITHIUM [Concomitant]
     Dosage: 800 MG, UNK
     Dates: start: 20090510, end: 20090727
  5. QUETIAPINE [Concomitant]
     Dosage: 400 MG, BID
     Dates: end: 20090622
  6. FLURAZEPAM [Concomitant]
     Dosage: 30 MG, QD
     Dates: end: 20090727

REACTIONS (4)
  - CAESAREAN SECTION [None]
  - DRUG EXPOSURE DURING PREGNANCY [None]
  - GESTATIONAL DIABETES [None]
  - NORMAL NEWBORN [None]
